FAERS Safety Report 10803623 (Version 1)
Quarter: 2015Q1

REPORT INFORMATION
  Report Type: Not Available
  Country: FR (occurrence: FR)
  Receive Date: 20150217
  Receipt Date: 20150217
  Transmission Date: 20150721
  Serious: Yes (Hospitalization)
  Sender: FDA-Public Use
  Company Number: FR-MUNDIPHARMA DS AND PHARMACOVIGILANCE-GBR-2015-0025459

PATIENT
  Age: 58 Year
  Sex: Female

DRUGS (7)
  1. SOLU-MEDROL [Concomitant]
     Active Substance: METHYLPREDNISOLONE SODIUM SUCCINATE
     Dosage: UNK
     Route: 042
     Dates: start: 20141002
  2. ZELITREX [Concomitant]
     Active Substance: VALACYCLOVIR HYDROCHLORIDE
     Dosage: 500 MG, TID
     Dates: start: 20141007
  3. WELLVONE [Concomitant]
     Active Substance: ATOVAQUONE
     Dosage: 750MG/5ML, 1 DF, BID
     Route: 065
     Dates: start: 20141009
  4. VERSATIS [Concomitant]
     Active Substance: LIDOCAINE
     Dosage: 5%, 1 DF DAILY
     Route: 062
     Dates: start: 20141004
  5. FORTUM                             /00559701/ [Concomitant]
     Active Substance: CEFTAZIDIME
     Dosage: 2 G, TID
     Route: 042
     Dates: start: 20140930, end: 20141010
  6. OXYNORM 5 MG, GELULE [Suspect]
     Active Substance: OXYCODONE HYDROCHLORIDE
     Indication: BACK PAIN
     Dosage: 5 MG, UNK
     Route: 048
     Dates: start: 20141007
  7. ACUPAN [Suspect]
     Active Substance: NEFOPAM HYDROCHLORIDE
     Indication: BACK PAIN
     Dosage: 1 DF, 6 TIMES DAILY
     Route: 042
     Dates: start: 20141002

REACTIONS (5)
  - Gastrointestinal obstruction [Unknown]
  - Faecaloma [Unknown]
  - Constipation [Not Recovered/Not Resolved]
  - Syncope [Unknown]
  - Acute respiratory distress syndrome [Unknown]

NARRATIVE: CASE EVENT DATE: 20141004
